FAERS Safety Report 7463896-5 (Version None)
Quarter: 2011Q2

REPORT INFORMATION
  Report Type: 
  Country: None (occurrence: None)
  Receive Date: 20110506
  Receipt Date: 20110503
  Transmission Date: 20111010
  Serious: Yes (Disabling, Other)
  Sender: FDA-Public Use
  Company Number: FR-US-EMD SERONO, INC.-7018271

PATIENT
  Sex: Female

DRUGS (3)
  1. VITAMIN D [Concomitant]
     Indication: PRODUCT USED FOR UNKNOWN INDICATION
  2. MELIANE [Concomitant]
     Indication: CONTRACEPTION
     Route: 048
  3. REBIF [Suspect]
     Indication: MULTIPLE SCLEROSIS
     Route: 058
     Dates: start: 20100610, end: 20100917

REACTIONS (3)
  - RETINAL EXUDATES [None]
  - VISUAL ACUITY REDUCED [None]
  - RETINOPATHY [None]
